FAERS Safety Report 9678603 (Version 4)
Quarter: 2014Q1

REPORT INFORMATION
  Report Type: Spontaneous
  Country: US (occurrence: US)
  Receive Date: 20131108
  Receipt Date: 20140120
  Transmission Date: 20141002
  Serious: Yes (Hospitalization, Other)
  Sender: FDA-Public Use
  Company Number: US-ABBVIE-13P-163-1165102-00

PATIENT
  Age: 47 Year
  Sex: Female
  Weight: 86.26 kg

DRUGS (5)
  1. HUMIRA [Suspect]
     Indication: CROHN^S DISEASE
     Dates: start: 2010, end: 2010
  2. HUMIRA [Suspect]
     Dosage: INITIAL DOSE
     Dates: start: 201109, end: 201109
  3. HUMIRA [Suspect]
     Dosage: TWO WEEKS AFTER STARTING DOSE, ONCE
  4. HUMIRA [Suspect]
     Dates: end: 201111
  5. BACTRIM [Suspect]
     Indication: URINARY TRACT INFECTION
     Dates: start: 201305, end: 201305

REACTIONS (10)
  - Vaginal haemorrhage [Recovered/Resolved]
  - Abdominal pain [Recovered/Resolved]
  - Abdominal distension [Recovered/Resolved]
  - Uterine cancer [Recovered/Resolved]
  - Endometrial cancer [Recovered/Resolved]
  - Pancreatitis [Recovered/Resolved]
  - Sinusitis [Recovered/Resolved]
  - Urinary tract infection [Recovered/Resolved]
  - Fatigue [Not Recovered/Not Resolved]
  - Sinusitis [Not Recovered/Not Resolved]
